FAERS Safety Report 21351177 (Version 1)
Quarter: 2022Q3

REPORT INFORMATION
  Report Type: Spontaneous
  Country: IN (occurrence: IN)
  Receive Date: 20220919
  Receipt Date: 20220919
  Transmission Date: 20221027
  Serious: Yes (Other)
  Sender: FDA-Public Use
  Company Number: IN-NOVARTISPH-NVSC2022IN210659

PATIENT
  Age: 54 Year
  Sex: Male

DRUGS (3)
  1. SIMULECT [Suspect]
     Active Substance: BASILIXIMAB
     Indication: Acute kidney injury
     Dosage: UNK (FIRST DOSE)
     Route: 042
     Dates: start: 20220915, end: 20220915
  2. NIFEDIPINE [Concomitant]
     Active Substance: NIFEDIPINE
     Indication: Product used for unknown indication
     Dosage: 20 MG, UNKNOWN
     Route: 065
  3. ASPIRIN [Concomitant]
     Active Substance: ASPIRIN
     Indication: Product used for unknown indication
     Dosage: 75 MG, UNKNOWN
     Route: 065

REACTIONS (2)
  - Anaphylactic reaction [Not Recovered/Not Resolved]
  - Product use in unapproved indication [Unknown]

NARRATIVE: CASE EVENT DATE: 20220915
